FAERS Safety Report 4681939-9 (Version None)
Quarter: 2005Q2

REPORT INFORMATION
  Report Type: 
  Country: None (occurrence: None)
  Receive Date: 20050602
  Receipt Date: 20050523
  Transmission Date: 20051028
  Serious: Yes (Congenital Anomaly)
  Sender: FDA-Public Use
  Company Number: 2005079718

PATIENT
  Sex: 0

DRUGS (2)
  1. DEPO-PROVERA [Suspect]
     Indication: ILL-DEFINED DISORDER
  2. ISOTRETINOIN [Suspect]
     Indication: ILL-DEFINED DISORDER

REACTIONS (3)
  - CONGENITAL ANOMALY [None]
  - DEVELOPMENTAL DELAY [None]
  - MOVEMENT DISORDER [None]
